FAERS Safety Report 5171210-3 (Version None)
Quarter: 2006Q4

REPORT INFORMATION
  Report Type: 
  Country: None (occurrence: None)
  Receive Date: 20061207
  Receipt Date: 20061207
  Transmission Date: 20070319
  Serious: Yes (Other)
  Sender: FDA-Public Use
  Company Number: None

PATIENT
  Age: 42 Year
  Sex: Female
  Weight: 68.0396 kg

DRUGS (1)
  1. LEVAQUIN [Suspect]
     Indication: ANTIBIOTIC PROPHYLAXIS
     Dosage: 500 MG X 1
     Route: 042
     Dates: start: 20061102

REACTIONS (3)
  - ERYTHEMA [None]
  - INFUSION RELATED REACTION [None]
  - PRURITUS [None]
